FAERS Safety Report 7419667-9 (Version None)
Quarter: 2011Q2

REPORT INFORMATION
  Report Type: 
  Country: None (occurrence: None)
  Receive Date: 20110418
  Receipt Date: 20110406
  Transmission Date: 20111010
  Serious: Yes (Hospitalization, Other)
  Sender: FDA-Public Use
  Company Number: US-JNJFOC-20110403496

PATIENT
  Sex: Female
  Weight: 97.52 kg

DRUGS (4)
  1. FENTANYL-100 [Suspect]
     Indication: PAIN
     Route: 062
  2. DURAGESIC [Suspect]
     Route: 062
  3. DURAGESIC [Suspect]
     Indication: PAIN
     Route: 062
  4. DURAGESIC [Suspect]
     Indication: RADICULAR PAIN
     Route: 062

REACTIONS (7)
  - HYPERHIDROSIS [None]
  - AUTOIMMUNE THYROIDITIS [None]
  - CHILLS [None]
  - ULCER [None]
  - DRUG INEFFECTIVE [None]
  - TREMOR [None]
  - HELICOBACTER INFECTION [None]
